FAERS Safety Report 11451532 (Version 2)
Quarter: 2015Q4

REPORT INFORMATION
  Report Type: Spontaneous
  Country: US (occurrence: US)
  Receive Date: 20150903
  Receipt Date: 20151012
  Transmission Date: 20160304
  Serious: Yes (Hospitalization, Other)
  Sender: FDA-Public Use
  Company Number: US-BEH-2015053450

PATIENT
  Age: 32 Year
  Sex: Female

DRUGS (1)
  1. PRIVIGEN [Suspect]
     Active Substance: HUMAN IMMUNOGLOBULIN G
     Indication: PRODUCT USED FOR UNKNOWN INDICATION
     Dates: start: 20150819

REACTIONS (3)
  - Pseudomonal bacteraemia [Unknown]
  - Device related infection [Unknown]
  - Sepsis [Unknown]

NARRATIVE: CASE EVENT DATE: 20150821
